FAERS Safety Report 15408101 (Version 2)
Quarter: 2020Q4

REPORT INFORMATION
  Report Type: Spontaneous
  Country: US (occurrence: US)
  Receive Date: 20180920
  Receipt Date: 20201013
  Transmission Date: 20210113
  Serious: Yes (Hospitalization)
  Sender: FDA-Public Use
  Company Number: US-KEDRION-2018-000105

PATIENT

DRUGS (1)
  1. RHOGAM [Suspect]
     Active Substance: HUMAN RHO(D) IMMUNE GLOBULIN
     Indication: PROPHYLAXIS AGAINST RH ISOIMMUNISATION
     Dosage: UNK
     Dates: start: 19910308, end: 19910309

REACTIONS (2)
  - Ovarian germ cell teratoma [Unknown]
  - Encephalitis autoimmune [Unknown]

NARRATIVE: CASE EVENT DATE: 201609
